FAERS Safety Report 21556573 (Version 1)
Quarter: 2022Q4

REPORT INFORMATION
  Report Type: Spontaneous
  Country: DE (occurrence: DE)
  Receive Date: 20221104
  Receipt Date: 20221104
  Transmission Date: 20230113
  Serious: Yes (Hospitalization, Other)
  Sender: FDA-Public Use
  Company Number: DE-ADRED-05474-01

PATIENT
  Age: 55 Year
  Sex: Female
  Weight: 108 kg

DRUGS (11)
  1. QUETIAPINE [Suspect]
     Active Substance: QUETIAPINE
     Indication: Product used for unknown indication
     Dosage: 300 MG, QD, 0-0-2-0 RETARD TABLETS
     Route: 048
  2. QUETIAPINE [Suspect]
     Active Substance: QUETIAPINE
     Dosage: 150 MG, 0-0-1-0, RETARD TABLET
     Route: 048
  3. AZITHROMYCIN [Suspect]
     Active Substance: AZITHROMYCIN
     Indication: Product used for unknown indication
     Dosage: 500 MG  24-02-2020 TO 26-02-2020 TABLET
     Route: 048
  4. PANTOPRAZOLE [Suspect]
     Active Substance: PANTOPRAZOLE
     Indication: Product used for unknown indication
     Dosage: 40 MILLIGRAM, QD, 1-0-0-0, TABLET
     Route: 048
  5. ZUCLOPENTHIXOL [Suspect]
     Active Substance: ZUCLOPENTHIXOL
     Indication: Product used for unknown indication
     Dosage: 10 MILLIGRAM, QD, 0-0-3-0, TABLET
     Route: 048
  6. TOPIRAMATE [Concomitant]
     Active Substance: TOPIRAMATE
     Dosage: 25 MILLIGRAM, QD, 0-0-2-0, TABLET
     Route: 048
  7. RAMIPRIL [Concomitant]
     Active Substance: RAMIPRIL
     Dosage: 2.5 MILLIGRAM, QD, 1-0-0-0, TABLET
     Route: 048
  8. RIVAROXABAN [Concomitant]
     Active Substance: RIVAROXABAN
     Dosage: NK MG, 1-0-0-0, TABLET
     Route: 048
  9. TORSEMIDE [Concomitant]
     Active Substance: TORSEMIDE
     Dosage: 10 MILLIGRAM, QD 2-0-0-0, TABLET
     Route: 048
  10. LEVOTHYROXINUM NATRICUM [Concomitant]
     Dosage: 100 MICROGRAM, QD 1-0-0-0, TABLET
     Route: 048
  11. SPIRONOLACTONE [Concomitant]
     Active Substance: SPIRONOLACTONE
     Dosage: 100 MILLIGRAM, QD, 1-0-0-0, TABLET
     Route: 048

REACTIONS (8)
  - Schizoaffective disorder [Unknown]
  - Condition aggravated [Unknown]
  - General physical health deterioration [Unknown]
  - Agitation [Unknown]
  - Abdominal pain [Unknown]
  - Electrocardiogram QT prolonged [Unknown]
  - Restlessness [Unknown]
  - Product prescribing error [Unknown]

NARRATIVE: CASE EVENT DATE: 20200224
